FAERS Safety Report 9377467 (Version 1)
Quarter: 2013Q3

REPORT INFORMATION
  Report Type: Spontaneous
  Country: ES (occurrence: ES)
  Receive Date: 20130701
  Receipt Date: 20130701
  Transmission Date: 20140515
  Serious: Yes (Other)
  Sender: FDA-Public Use
  Company Number: ES-JNJFOC-20130612072

PATIENT
  Age: 51 Year
  Sex: Male

DRUGS (8)
  1. RISPERDAL [Suspect]
     Indication: ACUTE PSYCHOSIS
     Route: 048
     Dates: start: 20120716
  2. RISPERDAL [Suspect]
     Indication: ACUTE PSYCHOSIS
     Route: 048
     Dates: start: 20120522, end: 201206
  3. RISPERDAL [Suspect]
     Indication: SCHIZOAFFECTIVE DISORDER
     Route: 048
     Dates: start: 20120522, end: 201206
  4. RISPERDAL [Suspect]
     Indication: SCHIZOAFFECTIVE DISORDER
     Route: 048
     Dates: start: 20120716
  5. HALOPERIDOL [Interacting]
     Indication: AGITATION
     Route: 030
     Dates: start: 20120716, end: 20120716
  6. ARIPIPRAZOLE [Interacting]
     Indication: SCHIZOAFFECTIVE DISORDER
     Route: 048
     Dates: start: 20120713, end: 20120717
  7. LARGACTIL [Concomitant]
     Indication: SCHIZOAFFECTIVE DISORDER
     Route: 048
     Dates: start: 20120522, end: 201206
  8. AKINETON [Concomitant]
     Indication: SCHIZOAFFECTIVE DISORDER
     Route: 048
     Dates: start: 20120522, end: 201206

REACTIONS (3)
  - Neuroleptic malignant syndrome [Recovered/Resolved]
  - Drug interaction [Recovered/Resolved]
  - Tetany [Unknown]
